FAERS Safety Report 4860194-0 (Version None)
Quarter: 2005Q4

REPORT INFORMATION
  Report Type: 
  Country: None (occurrence: None)
  Receive Date: 20051214
  Receipt Date: 20051129
  Transmission Date: 20060501
  Serious: Yes (Hospitalization)
  Sender: FDA-Public Use
  Company Number: US200511003152

PATIENT
  Age: 77 Year
  Sex: Male

DRUGS (17)
  1. PEMETREXED(PEMETREXED) VIAL [Suspect]
     Indication: NON-SMALL CELL LUNG CANCER
     Dosage: 500 MG/M2, OTHER, INTRAVENOUS
     Route: 042
     Dates: start: 20051024
  2. SYNTHROID [Concomitant]
  3. FUROSEMIDE [Concomitant]
  4. DARVOCET-N 100 [Concomitant]
  5. NEXIUM [Concomitant]
  6. DIGOXIN [Concomitant]
  7. FOLIC ACID [Concomitant]
  8. POTASSIUM CHLORIDE [Concomitant]
  9. FLOMAX [Concomitant]
  10. ALBUTEROL [Concomitant]
  11. IPRATROPIUM BROMIDE [Concomitant]
  12. OXYGEN (OXYGEN) [Concomitant]
  13. BUSPAR /AUS/ (BUSPIRONE HYDROCHLORIDE) [Concomitant]
  14. IMODIUM [Concomitant]
  15. FERROUS SULFATE TAB [Concomitant]
  16. ARANESP [Concomitant]
  17. SLO-MAG (MAGNESIUM CHLORIDE ANHYDROUS) [Concomitant]

REACTIONS (9)
  - ASPIRATION [None]
  - BRONCHIECTASIS [None]
  - CONDITION AGGRAVATED [None]
  - DIARRHOEA [None]
  - DYSPNOEA EXERTIONAL [None]
  - HAEMOGLOBIN DECREASED [None]
  - PNEUMONIA [None]
  - PURULENCE [None]
  - WHITE BLOOD CELL COUNT INCREASED [None]
